FAERS Safety Report 8902514 (Version 1)
Quarter: 2012Q4

REPORT INFORMATION
  Report Type: 
  Country: IT (occurrence: IT)
  Receive Date: 20121112
  Receipt Date: 20121112
  Transmission Date: 20130627
  Serious: Yes (Hospitalization)
  Sender: FDA-Public Use
  Company Number: IT-TEVA-367719ISR

PATIENT
  Age: 71 Year
  Sex: Female

DRUGS (4)
  1. LITHIUM [Suspect]
     Indication: DEPRESSION
     Dates: start: 20121023, end: 20121023
  2. VENLAFAXINE [Concomitant]
     Indication: DEPRESSION
  3. DEPAKIN [Concomitant]
     Dosage: Dose: valproate semisodium + valproic acid 500 mg
  4. VALSARTAN/IDROCLOROTIAZIDE [Concomitant]
     Indication: HYPERTENSION

REACTIONS (6)
  - Major depression [Recovered/Resolved]
  - Tremor [Recovered/Resolved]
  - Confusional state [Recovered/Resolved]
  - Aphasia [Recovered/Resolved]
  - Disorientation [Recovered/Resolved]
  - Antipsychotic drug level increased [Recovered/Resolved]
